FAERS Safety Report 4681400-1 (Version None)
Quarter: 2005Q2

REPORT INFORMATION
  Report Type: 
  Country: None (occurrence: None)
  Receive Date: 20050603
  Receipt Date: 20050522
  Transmission Date: 20051028
  Serious: Yes (Other)
  Sender: FDA-Public Use
  Company Number: ES-KINGPHARMUSA00001-K200500705

PATIENT
  Age: 44 Year
  Sex: Female

DRUGS (1)
  1. PENICILLIN G PROCAINE SUSPENSION [Suspect]
     Indication: TONSILLITIS
     Dosage: 1,200,000 UI, QD
     Route: 030

REACTIONS (8)
  - ANXIETY [None]
  - BODY DYSMORPHIC DISORDER [None]
  - CONFUSIONAL STATE [None]
  - FEAR [None]
  - HALLUCINATION, AUDITORY [None]
  - HALLUCINATION, VISUAL [None]
  - HOIGNE'S SYNDROME [None]
  - SWOLLEN TONGUE [None]
